FAERS Safety Report 9289881 (Version 2)
Quarter: 2013Q3

REPORT INFORMATION
  Report Type: Report from Study
  Country: BR (occurrence: BR)
  Receive Date: 20130515
  Receipt Date: 20130723
  Transmission Date: 20140515
  Serious: Yes (Hospitalization)
  Sender: FDA-Public Use
  Company Number: PHHY2013BR047753

PATIENT
  Age: 72 Year
  Sex: Male

DRUGS (3)
  1. FORASEQ [Suspect]
     Indication: ASTHMA
     Dosage: 1 DF, BID
  2. DIOVAN [Suspect]
     Indication: BLOOD PRESSURE
     Dosage: 320 MG, QD
     Route: 048
     Dates: start: 20090728
  3. ONBREZ [Concomitant]
     Dosage: 150 UG, UNK

REACTIONS (7)
  - Emphysema [Recovered/Resolved]
  - Haemorrhoids [Recovered/Resolved]
  - Lung disorder [Recovered/Resolved]
  - Lung infection [Recovered/Resolved]
  - Weight decreased [Not Recovered/Not Resolved]
  - Constipation [Recovered/Resolved]
  - Pyrexia [Recovered/Resolved]
